FAERS Safety Report 11467897 (Version 5)
Quarter: 2018Q1

REPORT INFORMATION
  Report Type: Report from Study
  Country: JP (occurrence: JP)
  Receive Date: 20150908
  Receipt Date: 20180201
  Transmission Date: 20180508
  Serious: Yes (Death, Life-Threatening, Hospitalization, Other)
  Sender: FDA-Public Use
  Company Number: JP-EISAI MEDICAL RESEARCH-EC-2015-010191

PATIENT
  Age: 52 Year
  Sex: Female
  Weight: 71 kg

DRUGS (25)
  1. HALAVEN [Suspect]
     Active Substance: ERIBULIN MESYLATE
     Route: 041
     Dates: start: 20150305, end: 20160512
  2. UREPEARL [Concomitant]
     Active Substance: UREA
  3. LUNESTA [Concomitant]
     Active Substance: ESZOPICLONE
  4. DICLOFENAC SODIUM. [Concomitant]
     Active Substance: DICLOFENAC SODIUM
  5. NEW LECICARBON [Concomitant]
     Active Substance: SODIUM BICARBONATE\SODIUM PHOSPHATE, MONOBASIC
  6. AMLODIN [Concomitant]
     Active Substance: AMLODIPINE BESYLATE
  7. MEDICON [Concomitant]
     Active Substance: DEXTROMETHORPHAN HYDROBROMIDE
  8. SOLDEM 3A [Concomitant]
     Active Substance: CARBOHYDRATES\POTASSIUM CHLORIDE\SODIUM CHLORIDE\SODIUM LACTATE
  9. CEFCAPENE PIVOXIL HYDROCHLORIDE HYDRATE [Concomitant]
     Active Substance: CEFCAPENE PIVOXIL HYDROCHLORIDE HYDRATE
  10. ETIZOLAM [Concomitant]
     Active Substance: ETIZOLAM
  11. HALAVEN [Suspect]
     Active Substance: ERIBULIN MESYLATE
     Indication: BREAST CANCER RECURRENT
     Route: 041
     Dates: start: 20150129, end: 20150219
  12. TSUMURA GOREISAN EXTRACT GRANULES FOR ETHHICAL USE [Concomitant]
  13. LOPEMIN [Concomitant]
     Active Substance: LOPERAMIDE HYDROCHLORIDE
  14. DENOTAS [Concomitant]
     Active Substance: CALCIUM CARBONATE\CHOLECALCIFEROL\MAGNESIUM CARBONATE
  15. SLOW-K [Concomitant]
     Active Substance: POTASSIUM CHLORIDE
  16. GENTACIN [Concomitant]
     Active Substance: GENTAMICIN SULFATE
  17. BIOFERMIN [Concomitant]
     Active Substance: BACILLUS SUBTILIS\LACTOBACILLUS ACIDOPHILUS\STREPTOCOCCUS FAECAIS
  18. BROTIZOLAM [Concomitant]
     Active Substance: BROTIZOLAM
  19. ALFAROL [Concomitant]
     Active Substance: ALFACALCIDOL
  20. CALCIUM LACTATE HYDRATE [Concomitant]
     Active Substance: CALCIUM LACTATE
  21. TRAMCET [Concomitant]
     Active Substance: ACETAMINOPHEN\TRAMADOL
  22. LOXOPROFEN [Concomitant]
     Active Substance: LOXOPROFEN
  23. K-SUPPLY [Concomitant]
     Active Substance: POTASSIUM CHLORIDE
  24. MS REISHIPPU [Concomitant]
     Active Substance: CAMPHOR\MENTHOL\METHYL SALICYLATE
  25. NEUTROGIN [Concomitant]
     Active Substance: LENOGRASTIM

REACTIONS (5)
  - Leukopenia [Recovered/Resolved]
  - Hypokalaemia [Recovered/Resolved]
  - Anaemia [Not Recovered/Not Resolved]
  - Neutropenia [Recovered/Resolved]
  - Malignant pleural effusion [Fatal]

NARRATIVE: CASE EVENT DATE: 20150205
